FAERS Safety Report 6515390-3 (Version None)
Quarter: 2009Q4

REPORT INFORMATION
  Report Type: 
  Country: None (occurrence: None)
  Receive Date: 20091223
  Receipt Date: 20091211
  Transmission Date: 20100525
  Serious: Yes (Hospitalization)
  Sender: FDA-Public Use
  Company Number: PHEH2009US16666

PATIENT
  Sex: Male
  Weight: 94.331 kg

DRUGS (5)
  1. RECLAST [Suspect]
     Indication: OSTEITIS DEFORMANS
     Dosage: 5 MG, UNK
     Dates: start: 20091106
  2. METFORMIN HCL [Concomitant]
     Dosage: 1000 MG, BID
  3. LISINOPRIL [Concomitant]
     Dosage: 20 MG, QD
  4. COREG [Concomitant]
     Dosage: 6.25 MG, BID
  5. SPIRONOLACTONE [Concomitant]
     Dosage: 25 MG, QD

REACTIONS (16)
  - ARTHRALGIA [None]
  - ASTHENIA [None]
  - BONE PAIN [None]
  - BRADYCARDIA [None]
  - CHILLS [None]
  - COUGH [None]
  - DECREASED APPETITE [None]
  - HYPOTENSION [None]
  - LETHARGY [None]
  - MENTAL STATUS CHANGES [None]
  - NAUSEA [None]
  - PNEUMONIA [None]
  - PYREXIA [None]
  - SEPSIS [None]
  - TACHYCARDIA [None]
  - TREMOR [None]
